FAERS Safety Report 20594386 (Version 1)
Quarter: 2022Q1

REPORT INFORMATION
  Report Type: Report from Study
  Country: US (occurrence: None)
  Receive Date: 20220315
  Receipt Date: 20220315
  Transmission Date: 20220423
  Serious: Yes (Death, Hospitalization)
  Sender: FDA-Public Use
  Company Number: US-ROCHE-3049323

PATIENT
  Sex: Male
  Weight: 76.7 kg

DRUGS (35)
  1. RITUXIMAB [Suspect]
     Active Substance: RITUXIMAB
     Indication: Mantle cell lymphoma
     Dosage: DAYS 1,8,15 AND 22. IV
     Route: 042
     Dates: start: 2015, end: 2015
  2. RITUXIMAB [Suspect]
     Active Substance: RITUXIMAB
     Route: 065
     Dates: start: 20180908
  3. RITUXIMAB [Suspect]
     Active Substance: RITUXIMAB
     Dosage: DAY 1,8, 15 AND 22 IV
     Route: 042
     Dates: start: 20180908
  4. RITUXIMAB [Suspect]
     Active Substance: RITUXIMAB
     Dosage: 1 IN 42 D, IV
     Route: 042
     Dates: start: 20190816, end: 20190921
  5. RITUXIMAB [Suspect]
     Active Substance: RITUXIMAB
     Dosage: ONCE IV
     Route: 042
     Dates: start: 20190301
  6. LENALIDOMIDE [Suspect]
     Active Substance: LENALIDOMIDE
     Indication: Mantle cell lymphoma
     Route: 048
  7. LENALIDOMIDE [Suspect]
     Active Substance: LENALIDOMIDE
     Dosage: 21 IN 28 D
     Route: 048
     Dates: start: 20170928, end: 20171005
  8. LENALIDOMIDE [Suspect]
     Active Substance: LENALIDOMIDE
     Dosage: 21 IN 28 D
     Route: 048
     Dates: start: 20180814, end: 20180910
  9. ACYCLOVIR [Concomitant]
     Active Substance: ACYCLOVIR
     Indication: Product used for unknown indication
     Route: 048
  10. ALIGN [Concomitant]
     Active Substance: BIFIDOBACTERIUM LONGUM SUBSP. INFANTIS
     Indication: Pancreatic failure
     Route: 048
  11. LOPERAMIDE HYDROCHLORIDE [Concomitant]
     Active Substance: LOPERAMIDE HYDROCHLORIDE
     Indication: Diarrhoea
     Dosage: 2.5/0.25 MG,
     Dates: start: 20170630, end: 20181015
  12. VITAMIN B12 [Concomitant]
     Active Substance: CYANOCOBALAMIN
     Indication: Vitamin B complex deficiency
     Route: 030
  13. TEGRETOL [Concomitant]
     Active Substance: CARBAMAZEPINE
     Indication: Epilepsy
     Route: 048
     Dates: start: 201507
  14. IBUPROFEN [Concomitant]
     Active Substance: IBUPROFEN
     Indication: Arthralgia
     Dosage: PRN
     Route: 048
     Dates: start: 201609
  15. ZOCOR [Concomitant]
     Active Substance: SIMVASTATIN
     Indication: Hypercholesterolaemia
     Route: 048
     Dates: start: 201509
  16. AUGMENTIN [Concomitant]
     Active Substance: AMOXICILLIN\CLAVULANATE POTASSIUM
     Indication: Sinusitis
     Dosage: 875/125 MG
     Route: 048
     Dates: start: 20180207, end: 20180307
  17. ZARXIO [Concomitant]
     Active Substance: FILGRASTIM-SNDZ
     Indication: Neutrophil count decreased
     Route: 030
     Dates: start: 20171103, end: 20171105
  18. FLONASE [Concomitant]
     Active Substance: FLUTICASONE PROPIONATE
     Indication: Seasonal allergy
     Dosage: NAS
     Dates: start: 20171006
  19. IPRATROPIUM [Concomitant]
     Active Substance: IPRATROPIUM
     Indication: Rhinorrhoea
     Dates: start: 20171201, end: 20181016
  20. DRONABINOL [Concomitant]
     Active Substance: DRONABINOL
     Indication: Prophylaxis
     Route: 048
     Dates: start: 20171214, end: 20181016
  21. ZENPEP [Concomitant]
     Active Substance: PANCRELIPASE AMYLASE\PANCRELIPASE LIPASE\PANCRELIPASE PROTEASE
     Indication: Pancreatic failure
     Route: 048
     Dates: start: 20180417, end: 20181016
  22. LIDOCAINE [Concomitant]
     Active Substance: LIDOCAINE
     Indication: Injury
     Route: 023
     Dates: start: 20181114, end: 20181114
  23. OXYCODONE HYDROCHLORIDE [Concomitant]
     Active Substance: OXYCODONE HYDROCHLORIDE
     Indication: Injury
     Route: 048
     Dates: start: 20181114, end: 20181114
  24. KEFLEX [Concomitant]
     Active Substance: CEPHALEXIN
     Indication: Infection prophylaxis
     Route: 048
     Dates: start: 20181115, end: 20190102
  25. ACETAMINOPHEN\HYDROCODONE [Concomitant]
     Active Substance: ACETAMINOPHEN\HYDROCODONE
     Indication: Injury
     Dosage: 5/325 MG, PRN
     Route: 048
     Dates: start: 20181115, end: 20190102
  26. FOLIC ACID [Concomitant]
     Active Substance: FOLIC ACID
     Indication: Vitamin supplementation
     Route: 048
     Dates: start: 20181025
  27. PRILOSEC [Concomitant]
     Active Substance: OMEPRAZOLE MAGNESIUM
     Indication: Gastrooesophageal reflux disease
     Route: 048
     Dates: start: 20181024
  28. ZANTAC [Concomitant]
     Active Substance: RANITIDINE HYDROCHLORIDE
     Indication: Gastrooesophageal reflux disease
     Dosage: PRN
     Route: 048
     Dates: start: 201608, end: 20181023
  29. FLUCONAZOLE [Concomitant]
     Active Substance: FLUCONAZOLE
     Indication: Product used for unknown indication
     Route: 048
  30. LOVENOX [Concomitant]
     Active Substance: ENOXAPARIN SODIUM
     Indication: Deep vein thrombosis
  31. GLYCOPYRROLATE [Concomitant]
     Active Substance: GLYCOPYRROLATE
     Indication: Product used for unknown indication
     Route: 042
     Dates: end: 20191008
  32. LORAZEPAM [Concomitant]
     Active Substance: LORAZEPAM
     Indication: Product used for unknown indication
     Route: 042
     Dates: end: 20191008
  33. LORAZEPAM [Concomitant]
     Active Substance: LORAZEPAM
     Route: 042
     Dates: end: 20191009
  34. SIMETHICONE (DIMETHICONE) [Concomitant]
     Active Substance: DIMETHICONE
     Indication: Product used for unknown indication
     Route: 048
     Dates: end: 20191007
  35. WHITE PETROLATUM [Concomitant]
     Active Substance: PETROLATUM
     Indication: Product used for unknown indication
     Route: 061
     Dates: end: 20191008

REACTIONS (6)
  - Platelet count decreased [Not Recovered/Not Resolved]
  - Anaemia [Not Recovered/Not Resolved]
  - Myelodysplastic syndrome [Not Recovered/Not Resolved]
  - Pyrexia [Not Recovered/Not Resolved]
  - Arthralgia [Not Recovered/Not Resolved]
  - Death [Fatal]
